FAERS Safety Report 23859786 (Version 1)
Quarter: 2024Q2

REPORT INFORMATION
  Report Type: Spontaneous
  Country: DE (occurrence: None)
  Receive Date: 20240515
  Receipt Date: 20240515
  Transmission Date: 20240716
  Serious: Yes (Congenital Anomaly, Other)
  Sender: FDA-Public Use
  Company Number: 2024A112431

PATIENT
  Sex: Male
  Weight: 1.4 kg

DRUGS (8)
  1. QUETIAPINE [Suspect]
     Active Substance: QUETIAPINE
     Dosage: 200 [MG/D ]/ IN THE LATE PREGNANCY COURSE 100 MG/D
     Route: 048
     Dates: start: 20211213, end: 20220711
  2. QUETIAPINE [Suspect]
     Active Substance: QUETIAPINE
     Dosage: IN THE LATE PREGNANCY COURSE 100 MG/D
     Dates: start: 20211213, end: 20220711
  3. PREGABALIN [Suspect]
     Active Substance: PREGABALIN
     Dosage: 600 [MG/D ]/0-30 WEEKS/ENTIRE PREGNANCY
     Dates: start: 20211213, end: 20220711
  4. VENLAFAXINE [Suspect]
     Active Substance: VENLAFAXINE HYDROCHLORIDE
     Dosage: 150 [MG/D ]/0-30 WEEKS/ENTIRE PREGNANCY
     Dates: start: 20211213, end: 20220711
  5. METHADONE [Suspect]
     Active Substance: METHADONE HYDROCHLORIDE
     Dosage: 60 [MG/D ]-0-30 WEEKS
     Dates: start: 20211213, end: 20220711
  6. CALCIUM PHOSPHATE, DIBASIC, ANHYDROUS\FERROUS SUCCINATE\MAGNESIUM HYDR [Suspect]
     Active Substance: CALCIUM PHOSPHATE, DIBASIC, ANHYDROUS\FERROUS SUCCINATE\MAGNESIUM HYDROXIDE
     Dosage: 9. - 30. GESTATIONAL WEEK
  7. ALCOHOL [Suspect]
     Active Substance: ALCOHOL
     Dosage: 1-3 BEER/D UNTIL GW 9
  8. ONDANSETRON [Concomitant]
     Active Substance: ONDANSETRON
     Dosage: SEVERAL TIMES DURING PREGNANCY/TRIMESTER: LONG TERM EXPOSURE

REACTIONS (6)
  - Foetal exposure during pregnancy [Recovered/Resolved]
  - Congenital hydrocephalus [Unknown]
  - Congenital nystagmus [Unknown]
  - Developmental delay [Unknown]
  - Drug withdrawal syndrome neonatal [Recovered/Resolved]
  - Premature baby [Unknown]

NARRATIVE: CASE EVENT DATE: 20220701
